FAERS Safety Report 9851908 (Version 1)
Quarter: 2014Q1

REPORT INFORMATION
  Report Type: Spontaneous
  Country: US (occurrence: None)
  Receive Date: 20140127
  Receipt Date: 20140127
  Transmission Date: 20141002
  Serious: Yes (Hospitalization)
  Sender: FDA-Public Use
  Company Number: 2014HINLIT0036

PATIENT
  Age: 38 Year
  Sex: 0

DRUGS (1)
  1. EMTRICITABINE + TENOFOVIR [Suspect]
     Indication: PROPHYLAXIS AGAINST HIV INFECTION

REACTIONS (2)
  - Obsessive-compulsive disorder [None]
  - Anxiety [None]
